FAERS Safety Report 8921227 (Version 2)
Quarter: 2013Q3

REPORT INFORMATION
  Report Type: Report from Study
  Country: JP (occurrence: JP)
  Receive Date: 20121123
  Receipt Date: 20130711
  Transmission Date: 20140515
  Serious: Yes (Other)
  Sender: FDA-Public Use
  Company Number: JP-009507513-1211JPN008825

PATIENT
  Age: 71 Year
  Sex: Female
  Weight: 64 kg

DRUGS (10)
  1. PEGINTRON [Suspect]
     Indication: CHRONIC HEPATITIS C
     Dosage: 1.25 MICROGRAM PER KILOGRAM, QW
     Route: 058
     Dates: start: 20120221, end: 20120329
  2. PEGINTRON [Suspect]
     Dosage: 1.25 MICROGRAM PER KILOGRAM, QW
     Route: 058
     Dates: start: 20120426
  3. REBETOL [Suspect]
     Indication: CHRONIC HEPATITIS C
     Dosage: 400 MG, QD
     Route: 048
     Dates: start: 20120221, end: 20120329
  4. REBETOL [Suspect]
     Dosage: 400 MG, QD
     Route: 048
     Dates: start: 20120426
  5. TELAVIC [Suspect]
     Indication: CHRONIC HEPATITIS C
     Dosage: 1500 MG, QD
     Route: 048
     Dates: start: 20120221, end: 20120328
  6. TELAVIC [Suspect]
     Dosage: 1500 MG, QD
     Route: 048
     Dates: start: 20120426, end: 20120516
  7. LASIX (FUROSEMIDE) [Suspect]
     Indication: ADVERSE EVENT
     Dosage: 40 MG, QD, FORMULATION-POR
     Route: 048
     Dates: start: 20120502, end: 20120621
  8. CONIEL [Concomitant]
     Indication: HYPERTENSION
     Dosage: 2 MG, QD, FOR-POR
     Route: 048
     Dates: end: 20120329
  9. ADALAT [Concomitant]
     Indication: HYPERTENSION
     Dosage: 40 MG, QD, FOR-POR
     Route: 048
     Dates: start: 20120419, end: 20120507
  10. BLOPRESS [Concomitant]
     Indication: HYPERTENSION
     Dosage: 12 MG, QD, FOR-POR
     Route: 048
     Dates: start: 20120510

REACTIONS (4)
  - Renal disorder [Unknown]
  - Oedema peripheral [Recovered/Resolved]
  - Cardiac failure [Recovered/Resolved]
  - Haemoglobin decreased [Recovered/Resolved]
